FAERS Safety Report 16999054 (Version 3)
Quarter: 2020Q3

REPORT INFORMATION
  Report Type: Report from Study
  Country: US (occurrence: US)
  Receive Date: 20191106
  Receipt Date: 20200717
  Transmission Date: 20201102
  Serious: Yes (Other)
  Sender: FDA-Public Use
  Company Number: NVSC2019US020894

PATIENT
  Sex: Male

DRUGS (2)
  1. REMODULIN [Suspect]
     Active Substance: TREPROSTINIL
     Indication: PRODUCT USED FOR UNKNOWN INDICATION
     Route: 065
  2. TREPROSTINIL. [Suspect]
     Active Substance: TREPROSTINIL
     Indication: PULMONARY ARTERIAL HYPERTENSION
     Dosage: 40 NG/KG/ MIN (CONTINUOUS)
     Route: 042
     Dates: start: 20180202

REACTIONS (6)
  - Tooth disorder [Unknown]
  - Loose tooth [Unknown]
  - Bone loss [Unknown]
  - Diarrhoea [Unknown]
  - Weight decreased [Unknown]
  - Blindness [Unknown]
